FAERS Safety Report 15715544 (Version 1)
Quarter: 2018Q4

REPORT INFORMATION
  Report Type: Spontaneous
  Country: CO (occurrence: CO)
  Receive Date: 20181212
  Receipt Date: 20181212
  Transmission Date: 20190205
  Serious: Yes (Hospitalization)
  Sender: FDA-Public Use
  Company Number: CO-FRESENIUS KABI-FK201812635

PATIENT
  Age: 56 Year
  Sex: Male

DRUGS (4)
  1. MEROPENEM. [Concomitant]
     Active Substance: MEROPENEM
     Indication: PSEUDOMONAS INFECTION
     Route: 065
  2. DORIPENEM. [Concomitant]
     Active Substance: DORIPENEM
     Indication: PSEUDOMONAS INFECTION
     Route: 065
  3. COLISTIMETHATE (MANUFACTURER UNKNOWN) [Suspect]
     Active Substance: COLISTIMETHATE SODIUM
     Dosage: 2 400 000 IU (ON FOURTH DAY OF COLISTIN THERAPY)
     Route: 065
  4. COLISTIMETHATE (MANUFACTURER UNKNOWN) [Suspect]
     Active Substance: COLISTIMETHATE SODIUM
     Indication: PSEUDOMONAS INFECTION
     Dosage: 10 000 000 IU IN TWO DIVIDED DOSES
     Route: 065

REACTIONS (2)
  - Nephropathy toxic [Unknown]
  - Renal tubular necrosis [Unknown]
